FAERS Safety Report 7799341-X (Version None)
Quarter: 2011Q4

REPORT INFORMATION
  Report Type: 
  Country: None (occurrence: None)
  Receive Date: 20111006
  Receipt Date: 20110927
  Transmission Date: 20120403
  Serious: Yes (Other)
  Sender: FDA-Public Use
  Company Number: PHHY2011IT86027

PATIENT
  Age: 48 Year
  Sex: Male

DRUGS (2)
  1. AMOXICILLIN [Suspect]
     Indication: PHARYNGITIS
     Dosage: 2 G, QD
  2. METHYLPREDNISOLONE [Concomitant]
     Dosage: 20 MG, UNK
     Route: 042

REACTIONS (9)
  - CHEST PAIN [None]
  - HYPERHIDROSIS [None]
  - PRURITUS [None]
  - ACUTE CORONARY SYNDROME [None]
  - URTICARIA [None]
  - KOUNIS SYNDROME [None]
  - ACUTE MYOCARDIAL INFARCTION [None]
  - DEVICE OCCLUSION [None]
  - MALAISE [None]
